FAERS Safety Report 19030355 (Version 1)
Quarter: 2021Q1

REPORT INFORMATION
  Report Type: Report from Study
  Country: IT (occurrence: IT)
  Receive Date: 20210319
  Receipt Date: 20210319
  Transmission Date: 20210420
  Serious: Yes (Other)
  Sender: FDA-Public Use
  Company Number: IT-TEVA-2021-IT-1890216

PATIENT
  Age: 46 Year
  Sex: Male

DRUGS (6)
  1. QUETIAPINE FUMARATE. [Suspect]
     Active Substance: QUETIAPINE FUMARATE
     Indication: GENERALISED TONIC-CLONIC SEIZURE
     Dosage: 1 DOSAGE FORMS
     Route: 048
     Dates: start: 20181222
  2. NEURABEN (BENZOILOSSIMETILTIAMINA ? PIRIDOSSINA HCL ? CIANOCOBALAMINA) [Concomitant]
  3. DEPAKIN CHRONO 300 MG COMPRESSE A RILASCIO PROLUNGATO [Suspect]
     Active Substance: VALPROIC ACID
     Indication: GENERALISED TONIC-CLONIC SEIZURE
     Dosage: 2 DOSAGE FORMS
     Route: 048
     Dates: start: 20181222
  4. ALCOVER  17,5% SOLUZIONE ORALE FLACONE 140ML [Concomitant]
  5. METADONE CLORIDRATO AFOM  1 MG/ML SOLUZIONE ORALE [Concomitant]
  6. CLEXANE T [Concomitant]
     Active Substance: ENOXAPARIN SODIUM

REACTIONS (5)
  - Head injury [Unknown]
  - Epilepsy [Unknown]
  - Alcohol abuse [Unknown]
  - Vomiting [Unknown]
  - Malaise [Unknown]

NARRATIVE: CASE EVENT DATE: 20210118
